FAERS Safety Report 8590892-7 (Version None)
Quarter: 2012Q3

REPORT INFORMATION
  Report Type: 
  Country: None (occurrence: None)
  Receive Date: 20120813
  Receipt Date: 20120803
  Transmission Date: 20120928
  Serious: Yes (Hospitalization)
  Sender: FDA-Public Use
  Company Number: CHPA2012IT017289

PATIENT
  Sex: Female

DRUGS (1)
  1. IBUPROFEN [Suspect]
     Indication: TOXICITY TO VARIOUS AGENTS
     Dosage: 4 DF DAILY
     Route: 048
     Dates: start: 20120707, end: 20120707

REACTIONS (2)
  - OFF LABEL USE [None]
  - POISONING [None]
